FAERS Safety Report 6839685-9 (Version None)
Quarter: 2010Q3

REPORT INFORMATION
  Report Type: 
  Country: None (occurrence: None)
  Receive Date: 20100714
  Receipt Date: 20100702
  Transmission Date: 20110219
  Serious: Yes (Other)
  Sender: FDA-Public Use
  Company Number: DE-PFIZER INC-2010073363

PATIENT
  Sex: Female

DRUGS (7)
  1. ATARAX [Suspect]
     Indication: PRURITUS
     Dosage: 25 MG, 1X/DAY
     Route: 048
  2. CETIRIZINE [Concomitant]
     Route: 048
  3. LORZAAR [Concomitant]
     Indication: HYPERTENSION
     Dosage: 0.5 TABLET
  4. TRIAMTERENE AND HYDROCHLOROTHIAZIDE [Concomitant]
     Indication: HYPERTENSION
     Dosage: 1 DF, UNK
     Route: 048
  5. MARCUMAR [Concomitant]
     Indication: ARRHYTHMIA
     Dosage: ACCORDING TO INR
     Route: 048
  6. MARCUMAR [Concomitant]
     Indication: TRANSIENT ISCHAEMIC ATTACK
  7. CONCOR COR [Concomitant]
     Indication: HYPERTENSION
     Dosage: 2 TABELTS

REACTIONS (2)
  - HEPATITIS [None]
  - LIVER INJURY [None]
